FAERS Safety Report 8024263-9 (Version None)
Quarter: 2012Q1

REPORT INFORMATION
  Report Type: 
  Country: None (occurrence: None)
  Receive Date: 20120105
  Receipt Date: 20111227
  Transmission Date: 20120608
  Serious: Yes (Hospitalization)
  Sender: FDA-Public Use
  Company Number: FR-MILLENNIUM PHARMACEUTICALS, INC.-2011-06750

PATIENT

DRUGS (7)
  1. DEXAMETHASONE [Concomitant]
     Indication: MULTIPLE MYELOMA
     Dosage: UNK
     Dates: start: 20110901
  2. ANAFRANIL [Concomitant]
  3. CASTOR OIL                         /01651202/ [Concomitant]
  4. TRAMADOL HYDROCHLORIDE [Concomitant]
  5. VELCADE [Suspect]
     Indication: MULTIPLE MYELOMA
     Dosage: 1 UNK, UNK
     Dates: start: 20110901
  6. THALIDOMIDE [Concomitant]
     Indication: MULTIPLE MYELOMA
     Dosage: 50 MG, UNK
     Route: 048
     Dates: start: 20110901
  7. ALDACTAZIDE [Concomitant]

REACTIONS (1)
  - ATRIAL FIBRILLATION [None]
